FAERS Safety Report 4674110-8 (Version None)
Quarter: 2005Q2

REPORT INFORMATION
  Report Type: 
  Country: None (occurrence: None)
  Receive Date: 20050524
  Receipt Date: 20050524
  Transmission Date: 20051028
  Serious: No
  Sender: FDA-Public Use
  Company Number: None

PATIENT
  Sex: Female
  Weight: 74.3899 kg

DRUGS (1)
  1. TRI-NORINYL [Suspect]
     Indication: CONTRACEPTION
     Dosage: 1 EVERY DAY ORAL
     Route: 048
     Dates: start: 19920504, end: 20050519

REACTIONS (4)
  - HAEMORRHAGE [None]
  - MALIGNANT MELANOMA [None]
  - PIGMENTATION DISORDER [None]
  - SKIN LESION [None]
